FAERS Safety Report 7392653-3 (Version None)
Quarter: 2011Q1

REPORT INFORMATION
  Report Type: 
  Country: None (occurrence: None)
  Receive Date: 20110330
  Receipt Date: 20110330
  Transmission Date: 20110831
  Serious: Yes (Hospitalization)
  Sender: FDA-Public Use
  Company Number: None

PATIENT
  Age: 10 Year
  Sex: Male
  Weight: 74 kg

DRUGS (2)
  1. GEODON [Suspect]
     Dosage: 40MG QHS PO
     Route: 048
  2. GEODON [Suspect]
     Indication: BIPOLAR DISORDER
     Dosage: 20MG QAM PO
     Route: 048
     Dates: start: 20110319, end: 20110320

REACTIONS (4)
  - PYREXIA [None]
  - OCULOGYRIC CRISIS [None]
  - AGITATION [None]
  - DYSKINESIA [None]
